APPROVED DRUG PRODUCT: LAMPRENE
Active Ingredient: CLOFAZIMINE
Strength: 100MG
Dosage Form/Route: CAPSULE;ORAL
Application: N019500 | Product #001
Applicant: NOVARTIS PHARMACEUTICALS CORP
Approved: Dec 15, 1986 | RLD: No | RS: No | Type: DISCN